FAERS Safety Report 24285870 (Version 1)
Quarter: 2024Q3

REPORT INFORMATION
  Report Type: Report from Study
  Country: US (occurrence: US)
  Receive Date: 20240905
  Receipt Date: 20240905
  Transmission Date: 20241017
  Serious: Yes (Other)
  Sender: CHIESI
  Company Number: US-CHIESI-2024CHF05485

PATIENT
  Sex: Male

DRUGS (4)
  1. CUROSURF [Suspect]
     Active Substance: PORACTANT ALFA
     Indication: Neonatal respiratory distress syndrome
     Dosage: 240 MILLIGRAM/KILOGRAM
  2. CUROSURF [Suspect]
     Active Substance: PORACTANT ALFA
     Dosage: 80 MILLIGRAM/KILOGRAM
  3. CAFFEINE [Concomitant]
     Active Substance: CAFFEINE
     Indication: Product used for unknown indication
     Dosage: UNK
  4. OXYGEN [Concomitant]
     Active Substance: OXYGEN
     Indication: Product used for unknown indication
     Dosage: UNK

REACTIONS (4)
  - Bronchopulmonary dysplasia [Unknown]
  - Prescribed overdose [Unknown]
  - Off label use [Unknown]
  - Off label use [Unknown]
